FAERS Safety Report 6649532-6 (Version None)
Quarter: 2010Q1

REPORT INFORMATION
  Report Type: 
  Country: None (occurrence: None)
  Receive Date: 20100324
  Receipt Date: 20100324
  Transmission Date: 20100710
  Serious: Yes (Hospitalization)
  Sender: FDA-Public Use
  Company Number: None

PATIENT
  Age: 54 Year
  Sex: Male
  Weight: 160 kg

DRUGS (3)
  1. BUMETANIDE [Suspect]
     Indication: CARDIAC FAILURE CONGESTIVE
     Dosage: 2 MG BID PO
     Route: 048
     Dates: start: 20091119, end: 20091124
  2. BUMETANIDE [Suspect]
     Indication: DIASTOLIC DYSFUNCTION
     Dosage: 2 MG BID PO
     Route: 048
     Dates: start: 20091119, end: 20091124
  3. LISINOPRIL [Suspect]
     Indication: HYPERTENSION
     Dosage: 40 MG EVERY DAY PO
     Route: 048
     Dates: start: 20051024, end: 20091222

REACTIONS (2)
  - BLOOD CREATINE INCREASED [None]
  - BLOOD UREA INCREASED [None]
